FAERS Safety Report 7303919-7 (Version None)
Quarter: 2011Q1

REPORT INFORMATION
  Report Type: 
  Country: None (occurrence: None)
  Receive Date: 20110221
  Receipt Date: 20110214
  Transmission Date: 20110831
  Serious: Yes (Death)
  Sender: FDA-Public Use
  Company Number: BE-ROCHE-759594

PATIENT
  Sex: Male
  Weight: 75 kg

DRUGS (16)
  1. DOBUTREX [Concomitant]
     Indication: MYOCARDIAL DEPRESSION
     Dosage: DOSE: 20 GAMMA; FREQUENCY: CONTINUOUS
     Route: 042
     Dates: start: 20110127, end: 20110209
  2. CIPROXINE [Concomitant]
     Indication: NOSOCOMIAL INFECTION
     Dosage: INDICATION: NOSOCOMIAL SUPRA-INFECTION
     Route: 042
     Dates: start: 20110209, end: 20110209
  3. CEFTAZIDIME [Concomitant]
     Indication: NOSOCOMIAL INFECTION
     Dosage: INDICATION: NOSOCOMIAL SUPRA-INFECTION
     Route: 042
     Dates: start: 20110131, end: 20110202
  4. MIDAZOLAM [Concomitant]
     Indication: SEDATION
     Dosage: DOSE: 2-5 MG/H; FREQUENCY: CONTINUOUS
     Route: 042
     Dates: start: 20110127, end: 20110209
  5. AMIKACIN [Concomitant]
     Indication: NOSOCOMIAL INFECTION
     Dosage: DRUG: AMUKAN/ AMIKACINE; INDICATION: NOSOCOMIAL SUPRA-INFECTION
     Route: 042
     Dates: start: 20110209, end: 20110209
  6. VANCOMYCINE [Concomitant]
     Indication: NOSOCOMIAL INFECTION
     Dosage: INDICATION: NOSOCOMIAL SUPRA-INFECTION; FREQUENCY: CONTINUOUS
     Route: 042
     Dates: start: 20110131, end: 20110209
  7. AMBISOME [Concomitant]
     Route: 042
     Dates: start: 20110201, end: 20110204
  8. CEFTRIAXONE [Concomitant]
     Indication: BACTERIAL INFECTION
     Dosage: INDICATION: BACTERIAL SURINFECTION
     Route: 042
     Dates: start: 20110126, end: 20110201
  9. CORDARONE [Concomitant]
     Indication: ATRIAL FIBRILLATION
     Dosage: FREQUENCY: CONTINUOUS
     Route: 042
     Dates: start: 20110205, end: 20110207
  10. TAMIFLU [Concomitant]
     Indication: INFLUENZA
     Route: 048
     Dates: start: 20110127, end: 20110128
  11. OSELTAMIVIR [Suspect]
     Indication: INFLUENZA
     Route: 042
     Dates: start: 20110127, end: 20110209
  12. NOREPINEPHRINE BITARTRATE [Suspect]
     Indication: HYPOTENSION
     Dosage: DRUG: LEVOPHED; DOSE: 100-400 GAMMA; FREQUENCY: CONTINUOUS
     Route: 042
     Dates: start: 20110127, end: 20110209
  13. NIMBEX [Concomitant]
     Dosage: INDICATION: CURARE TO INCREASE VENTILATION; DOSE: 4-12 MG/H; FREQUENCY: CONTINUOUS
     Route: 042
     Dates: start: 20110127, end: 20110209
  14. BICLAR [Concomitant]
     Route: 042
     Dates: start: 20110126, end: 20110128
  15. MERONEM [Concomitant]
     Indication: NOSOCOMIAL INFECTION
     Route: 042
     Dates: start: 20110202, end: 20110209
  16. AMBISOME [Concomitant]
     Dosage: INDICATION: SUSPICION OF INVASIVE ASPERGILLOSIS
     Route: 042

REACTIONS (2)
  - PERITONEAL NECROSIS [None]
  - INTESTINAL ISCHAEMIA [None]
